FAERS Safety Report 13476795 (Version 1)
Quarter: 2017Q2

REPORT INFORMATION
  Report Type: Spontaneous
  Country: US (occurrence: US)
  Receive Date: 20170424
  Receipt Date: 20170424
  Transmission Date: 20170830
  Serious: No
  Sender: FDA-Public Use
  Company Number: None

PATIENT
  Age: 85 Year
  Sex: Male

DRUGS (1)
  1. ZYTIGA [Suspect]
     Active Substance: ABIRATERONE ACETATE
     Indication: PROSTATE CANCER
     Dosage: 1000MG ONCE DAILY BY MOUTH
     Route: 048
     Dates: start: 20160331

REACTIONS (2)
  - Visual impairment [None]
  - Fatigue [None]

NARRATIVE: CASE EVENT DATE: 20170324
